FAERS Safety Report 10070299 (Version 1)
Quarter: 2014Q2

REPORT INFORMATION
  Report Type: Spontaneous
  Country: US (occurrence: US)
  Receive Date: 20140410
  Receipt Date: 20140410
  Transmission Date: 20141212
  Serious: Yes (Disabling)
  Sender: FDA-Public Use
  Company Number: US-PFIZER INC-2014101058

PATIENT
  Age: 47 Year
  Sex: Male
  Weight: 81.6 kg

DRUGS (3)
  1. CHANTIX [Suspect]
     Indication: SMOKING CESSATION THERAPY
     Dosage: UNK
     Dates: start: 2009, end: 2009
  2. METFORMIN [Concomitant]
     Indication: DIABETES MELLITUS
     Dosage: 1000MG MORNING AND 1500MG IN EVENING, 2X/DAY
  3. AMARYL [Concomitant]
     Indication: DIABETES MELLITUS
     Dosage: 1 MG, DAILY

REACTIONS (1)
  - Neuropathy peripheral [Unknown]
